FAERS Safety Report 7061718-8 (Version None)
Quarter: 2010Q4

REPORT INFORMATION
  Report Type: 
  Country: None (occurrence: None)
  Receive Date: 20101026
  Receipt Date: 20101014
  Transmission Date: 20110411
  Serious: Yes (Life-Threatening, Other)
  Sender: FDA-Public Use
  Company Number: JP-ROCHE-731524

PATIENT
  Sex: Female
  Weight: 48 kg

DRUGS (9)
  1. AVASTIN [Suspect]
     Indication: LARGE INTESTINE CARCINOMA
     Dosage: DRUG DISCONTINUED.
     Route: 041
     Dates: start: 20100423, end: 20100423
  2. AVASTIN [Suspect]
     Route: 041
     Dates: start: 20100612
  3. XELODA [Suspect]
     Indication: LARGE INTESTINE CARCINOMA
     Dosage: DISCONTINUED. DOSAGE IS UNCERTAIN.
     Route: 048
     Dates: end: 20100423
  4. XELODA [Suspect]
     Route: 048
     Dates: start: 20100612
  5. OXALIPLATIN [Concomitant]
     Dosage: DOSAGE IS UNCERTAIN.
     Route: 041
     Dates: start: 20100423
  6. OXALIPLATIN [Concomitant]
     Dosage: DOSAGE IS UNCERTAIN.
     Route: 041
     Dates: start: 20100612
  7. PYDOXAL [Concomitant]
     Route: 048
     Dates: start: 20100423
  8. KERATINAMIN [Concomitant]
     Route: 003
     Dates: start: 20100423
  9. DECADRON [Concomitant]
     Route: 065
     Dates: start: 20100423, end: 20100423

REACTIONS (3)
  - PERITONITIS [None]
  - PULMONARY EMBOLISM [None]
  - RECTAL PERFORATION [None]
